FAERS Safety Report 16197464 (Version 1)
Quarter: 2019Q2

REPORT INFORMATION
  Report Type: Spontaneous
  Country: US (occurrence: US)
  Receive Date: 20190413
  Receipt Date: 20190413
  Transmission Date: 20190711
  Serious: No
  Sender: FDA-Public Use
  Company Number: None

PATIENT
  Age: 10 Year
  Sex: Female
  Weight: 49.5 kg

DRUGS (2)
  1. SINGULAR 5MG PO Q D [Concomitant]
  2. XYZAL [Suspect]
     Active Substance: LEVOCETIRIZINE DIHYDROCHLORIDE
     Indication: SEASONAL ALLERGY
     Dosage: ?          QUANTITY:55 TABLET(S);?
     Route: 048
     Dates: start: 20190313, end: 20190412

REACTIONS (2)
  - Therapy change [None]
  - Rash [None]

NARRATIVE: CASE EVENT DATE: 20190318
